FAERS Safety Report 19193220 (Version 1)
Quarter: 2021Q2

REPORT INFORMATION
  Report Type: Spontaneous
  Country: US (occurrence: US)
  Receive Date: 20210429
  Receipt Date: 20210429
  Transmission Date: 20210717
  Serious: Yes (Hospitalization)
  Sender: FDA-Public Use
  Company Number: US-KARYOPHARM-2021KPT000564

PATIENT

DRUGS (5)
  1. CARFILZOMIB [Concomitant]
     Active Substance: CARFILZOMIB
     Indication: PLASMA CELL MYELOMA
     Dosage: 56 MG/M2, WEEKLY
  2. XPOVIO [Suspect]
     Active Substance: SELINEXOR
     Dosage: 100 MG, WEEKLY
     Route: 048
  3. DEXAMETHASONE. [Concomitant]
     Active Substance: DEXAMETHASONE
     Indication: PLASMA CELL MYELOMA
     Dosage: 40 MG, WEEKLY
  4. CARFILZOMIB [Concomitant]
     Active Substance: CARFILZOMIB
     Dosage: 27 MG/M2
  5. XPOVIO [Suspect]
     Active Substance: SELINEXOR
     Indication: PLASMA CELL MYELOMA
     Dosage: 80 MG, 2X/WEEK
     Route: 048

REACTIONS (12)
  - Dysgeusia [Unknown]
  - Thrombocytopenia [Recovering/Resolving]
  - Diarrhoea [Unknown]
  - Clostridium difficile colitis [Unknown]
  - Pneumonia mycoplasmal [Recovered/Resolved]
  - Hypotension [Recovered/Resolved]
  - Pneumonia respiratory syncytial viral [Recovered/Resolved]
  - Neutropenia [Recovering/Resolving]
  - Supraventricular tachycardia [Unknown]
  - Fatigue [Unknown]
  - Dizziness [Recovered/Resolved]
  - Pneumonia [Unknown]
